FAERS Safety Report 7634183-7 (Version None)
Quarter: 2011Q3

REPORT INFORMATION
  Report Type: 
  Country: None (occurrence: None)
  Receive Date: 20110725
  Receipt Date: 20110719
  Transmission Date: 20111222
  Serious: Yes (Life-Threatening, Hospitalization, Other)
  Sender: FDA-Public Use
  Company Number: US-ASTRAZENECA-2011SE30385

PATIENT
  Age: 15719 Day
  Sex: Female

DRUGS (1)
  1. SEROQUEL XR [Suspect]
     Indication: BIPOLAR DISORDER
     Dosage: TIT. 150-600 MG FOR ONE WEEK
     Route: 048
     Dates: start: 20110505, end: 20110513

REACTIONS (3)
  - STEVENS-JOHNSON SYNDROME [None]
  - LOSS OF CONSCIOUSNESS [None]
  - DELIRIUM [None]
